FAERS Safety Report 14681418 (Version 3)
Quarter: 2018Q2

REPORT INFORMATION
  Report Type: Spontaneous
  Country: DK (occurrence: DK)
  Receive Date: 20180326
  Receipt Date: 20180405
  Transmission Date: 20180711
  Serious: Yes (Life-Threatening)
  Sender: FDA-Public Use
  Company Number: DK-PFIZER INC-2018123276

PATIENT
  Age: 62 Year
  Sex: Male
  Weight: 84.3 kg

DRUGS (16)
  1. VINCRISTINE SULFATE. [Suspect]
     Active Substance: VINCRISTINE SULFATE
     Indication: DIFFUSE LARGE B-CELL LYMPHOMA
     Dosage: UNK (DAY 1)
     Route: 042
     Dates: start: 20171013
  2. ALLOPURINOL. [Concomitant]
     Active Substance: ALLOPURINOL
     Indication: RENAL DISORDER
     Dosage: 300 MG, QD
     Route: 048
     Dates: start: 20171009
  3. PREDNISOLONE. [Concomitant]
     Active Substance: PREDNISOLONE
     Indication: NEOPLASM
     Dosage: 100 MG, QD
     Route: 048
  4. RITUXIMAB. [Suspect]
     Active Substance: RITUXIMAB
     Indication: DIFFUSE LARGE B-CELL LYMPHOMA
     Dosage: UNK (DAY 1)
     Route: 042
     Dates: start: 20171013
  5. DOXORUBICIN HCL [Suspect]
     Active Substance: DOXORUBICIN HYDROCHLORIDE
     Indication: DIFFUSE LARGE B-CELL LYMPHOMA
     Dosage: UNK (DAY 1)
     Route: 042
     Dates: start: 20171013
  6. SULFAMETOXAZOL [Concomitant]
     Active Substance: SULFAMETHOXAZOLE
     Indication: INFECTION PROPHYLAXIS
     Dosage: 400 MG, QD
     Route: 048
     Dates: start: 20171013
  7. MAGNESIA /00123201/ [Concomitant]
     Active Substance: MAGNESIUM HYDROXIDE
     Indication: CONSTIPATION PROPHYLAXIS
     Dosage: 1 G, QD
     Route: 048
     Dates: start: 20171011, end: 20171012
  8. TAVEGYL [Concomitant]
     Active Substance: CLEMASTINE FUMARATE
     Indication: PROPHYLAXIS
     Dosage: 800 MG, UNK
     Route: 048
     Dates: start: 20171009
  9. ONDANSETRON [Concomitant]
     Active Substance: ONDANSETRON
     Indication: PROPHYLAXIS OF NAUSEA AND VOMITING
     Dosage: UNK, AS NEEDED
     Route: 048
     Dates: start: 20171009
  10. DURVALUMAB. [Suspect]
     Active Substance: DURVALUMAB
     Indication: DIFFUSE LARGE B-CELL LYMPHOMA
     Dosage: UNK
     Route: 042
     Dates: start: 20171013
  11. CYCLOPHOSPHAMIDE. [Suspect]
     Active Substance: CYCLOPHOSPHAMIDE
     Indication: DIFFUSE LARGE B-CELL LYMPHOMA
     Dosage: UNK (DAY 1)
     Route: 042
     Dates: start: 20171013
  12. PEGFILGRASTIM [Concomitant]
     Active Substance: PEGFILGRASTIM
     Indication: PROPHYLAXIS
     Dosage: UNK, AS NEEDED
     Route: 058
     Dates: start: 20171016
  13. PREDNISONE. [Suspect]
     Active Substance: PREDNISONE
     Indication: DIFFUSE LARGE B-CELL LYMPHOMA
     Dosage: UNK (DAY 1 TO 5)
     Route: 065
     Dates: start: 20171013
  14. ACICLODAN [Concomitant]
     Indication: INFECTION PROPHYLAXIS
     Dosage: 1600 MG, QD
     Route: 048
     Dates: start: 20171013
  15. PARACETAMOL [Concomitant]
     Active Substance: ACETAMINOPHEN
     Indication: PROPHYLAXIS
     Dosage: UNK, AS NEEDED
     Route: 048
  16. MOVICOL [Concomitant]
     Active Substance: POLYETHYLENE GLYCOL 3350\POTASSIUM CHLORIDE\SODIUM BICARBONATE\SODIUM CHLORIDE
     Indication: CONSTIPATION PROPHYLAXIS
     Dosage: 1 DF, QD
     Route: 048
     Dates: start: 20171011, end: 20171012

REACTIONS (1)
  - Anaemia [Recovered/Resolved]

NARRATIVE: CASE EVENT DATE: 20171023
